FAERS Safety Report 18033086 (Version 1)
Quarter: 2020Q3

REPORT INFORMATION
  Report Type: Spontaneous
  Country: US (occurrence: US)
  Receive Date: 20200716
  Receipt Date: 20200716
  Transmission Date: 20201103
  Serious: No
  Sender: FDA-Public Use
  Company Number: US-CELGENEUS-USA-20200703603

PATIENT
  Age: 70 Year
  Sex: Male

DRUGS (2)
  1. FEDRATINIB [Suspect]
     Active Substance: FEDRATINIB
     Indication: MYELODYSPLASTIC SYNDROME
     Dosage: 400 MILLIGRAM
     Route: 048
     Dates: start: 202004
  2. FEDRATINIB [Suspect]
     Active Substance: FEDRATINIB
     Indication: MYELOPROLIFERATIVE NEOPLASM

REACTIONS (5)
  - Drug ineffective [Unknown]
  - Somnolence [Unknown]
  - Platelet count increased [Unknown]
  - Dyspepsia [Unknown]
  - Nausea [Unknown]

NARRATIVE: CASE EVENT DATE: 20200612
